FAERS Safety Report 5300049-0 (Version None)
Quarter: 2007Q2

REPORT INFORMATION
  Report Type: 
  Country: None (occurrence: None)
  Receive Date: 20070410
  Receipt Date: 20070330
  Transmission Date: 20071010
  Serious: Yes (Other)
  Sender: FDA-Public Use
  Company Number: B0462045A

PATIENT
  Age: 68 Year
  Sex: Male

DRUGS (5)
  1. FLOVENT [Suspect]
     Indication: ASTHMA
     Dosage: 1 BLISTER / TWICE PER DAY / INHALED
     Route: 055
     Dates: start: 19970301
  2. AMLODIPINE [Concomitant]
  3. SIMVASTATIN [Concomitant]
  4. GLICLAZIDE [Concomitant]
  5. QUINIDINE SULFATE [Concomitant]

REACTIONS (2)
  - ABNORMAL DREAMS [None]
  - AGGRESSION [None]
